FAERS Safety Report 4290204-3 (Version None)
Quarter: 2004Q1

REPORT INFORMATION
  Report Type: 
  Country: None (occurrence: None)
  Receive Date: 20040210
  Receipt Date: 20040123
  Transmission Date: 20041129
  Serious: Yes (Death, Life-Threatening, Other)
  Sender: FDA-Public Use
  Company Number: PHBS2004NL01165

PATIENT
  Age: 44 Year
  Sex: Male

DRUGS (4)
  1. GLEEVEC [Suspect]
     Indication: CHRONIC MYELOID LEUKAEMIA
     Dosage: 400 MG/D
     Route: 048
     Dates: start: 20030617
  2. GLEEVEC [Suspect]
     Dosage: 800 MG/D
     Route: 048
  3. CYTARABINE [Suspect]
     Indication: ACUTE LEUKAEMIA
  4. ANTIBIOTICS [Concomitant]

REACTIONS (6)
  - ACUTE MYELOID LEUKAEMIA [None]
  - CARDIAC ARREST [None]
  - CARDIOMYOPATHY [None]
  - THROMBOCYTOPENIA [None]
  - TOXIC SKIN ERUPTION [None]
  - VENTRICULAR DYSFUNCTION [None]
